FAERS Safety Report 9857096 (Version 2)
Quarter: 2014Q1

REPORT INFORMATION
  Report Type: Report from Study
  Country: CA (occurrence: CA)
  Receive Date: 20140130
  Receipt Date: 20140130
  Transmission Date: 20141002
  Serious: Yes (Hospitalization)
  Sender: FDA-Public Use
  Company Number: CA-ABBVIE-13P-028-1088194-00

PATIENT
  Sex: Male
  Weight: 90.8 kg

DRUGS (11)
  1. HUMIRA [Suspect]
     Indication: CROHN^S DISEASE
     Route: 058
     Dates: start: 20121219, end: 20130509
  2. HUMIRA [Suspect]
     Route: 058
     Dates: start: 20140121
  3. LASIX [Concomitant]
     Indication: PRODUCT USED FOR UNKNOWN INDICATION
  4. DILAUDID [Concomitant]
     Indication: CROHN^S DISEASE
     Route: 048
  5. SOLUMEDROL [Concomitant]
     Indication: PRODUCT USED FOR UNKNOWN INDICATION
     Route: 042
  6. CIPRO [Concomitant]
     Indication: PRODUCT USED FOR UNKNOWN INDICATION
     Route: 042
  7. FLAGYL [Concomitant]
     Indication: PRODUCT USED FOR UNKNOWN INDICATION
     Route: 042
  8. CODEINE [Concomitant]
     Indication: CROHN^S DISEASE
     Route: 048
  9. FENTANYL [Concomitant]
     Indication: CROHN^S DISEASE
     Route: 048
  10. ATIVAN [Concomitant]
     Indication: ANXIETY
     Route: 048
  11. ATROVENT [Concomitant]
     Indication: ASTHMA
     Route: 055

REACTIONS (7)
  - Rectal haemorrhage [Unknown]
  - Crohn^s disease [Unknown]
  - Intestinal obstruction [Unknown]
  - Crohn^s disease [Recovering/Resolving]
  - Abdominal pain upper [Recovering/Resolving]
  - Diarrhoea [Recovering/Resolving]
  - Nausea [Unknown]
